FAERS Safety Report 24612794 (Version 1)
Quarter: 2024Q4

REPORT INFORMATION
  Report Type: Spontaneous
  Country: RU (occurrence: RU)
  Receive Date: 20241113
  Receipt Date: 20241113
  Transmission Date: 20250114
  Serious: Yes (Life-Threatening, Other)
  Sender: ABBVIE
  Company Number: RU-ABBVIE-6002007

PATIENT
  Age: 26 Year
  Sex: Male
  Weight: 61 kg

DRUGS (9)
  1. SEVOFLURANE [Suspect]
     Active Substance: SEVOFLURANE
     Indication: General anaesthesia
     Route: 055
     Dates: start: 20241101, end: 20241101
  2. FENTANYL [Concomitant]
     Active Substance: FENTANYL
     Indication: Product used for unknown indication
     Route: 041
     Dates: start: 20241101, end: 20241101
  3. ONDANSETRON [Concomitant]
     Active Substance: ONDANSETRON
     Indication: Product used for unknown indication
     Route: 040
     Dates: start: 20241101, end: 20241101
  4. ULTRAVIST [Suspect]
     Active Substance: IOPROMIDE
     Indication: Angiogram
     Dosage: ULTRAVIST 300
     Route: 013
     Dates: start: 20241101, end: 20241101
  5. ROCURONIUM [Concomitant]
     Active Substance: ROCURONIUM BROMIDE
     Indication: Product used for unknown indication
     Route: 041
     Dates: start: 20241101
  6. CEFUROXIME [Concomitant]
     Active Substance: CEFUROXIME
     Indication: Product used for unknown indication
     Route: 041
     Dates: start: 20241101, end: 20241101
  7. PROPOFOL [Concomitant]
     Active Substance: PROPOFOL
     Indication: Induction of anaesthesia
     Route: 040
     Dates: start: 20241101, end: 20241101
  8. NOREPINEPHRINE [Concomitant]
     Active Substance: NOREPINEPHRINE\NOREPINEPHRINE BITARTRATE
     Indication: Product used for unknown indication
     Route: 041
     Dates: start: 20241101, end: 20241101
  9. KETOPROFEN [Concomitant]
     Active Substance: KETOPROFEN
     Indication: Product used for unknown indication
     Route: 040
     Dates: start: 20241101, end: 20241101

REACTIONS (7)
  - Pulmonary oedema [Recovering/Resolving]
  - Acute respiratory distress syndrome [Recovering/Resolving]
  - Haemodynamic instability [Recovering/Resolving]
  - Unevaluable event [Recovering/Resolving]
  - Haemoptysis [Recovering/Resolving]
  - Respiratory failure [Recovering/Resolving]
  - Hypotension [Recovering/Resolving]

NARRATIVE: CASE EVENT DATE: 20241101
